FAERS Safety Report 17313275 (Version 2)
Quarter: 2020Q1

REPORT INFORMATION
  Report Type: Spontaneous
  Country: FR (occurrence: FR)
  Receive Date: 20200124
  Receipt Date: 20200213
  Transmission Date: 20200409
  Serious: Yes (Other)
  Sender: FDA-Public Use
  Company Number: FR-ROCHE-2523773

PATIENT
  Age: 68 Year
  Sex: Male
  Weight: 80.5 kg

DRUGS (10)
  1. CELLCEPT [Suspect]
     Active Substance: MYCOPHENOLATE MOFETIL\MYCOPHENOLATE MOFETIL HYDROCHLORIDE
     Indication: PROPHYLAXIS AGAINST TRANSPLANT REJECTION
     Route: 042
     Dates: start: 20190424
  2. ADIAZINE [Concomitant]
     Active Substance: SULFADIAZINE
     Indication: TOXOPLASMOSIS
     Dosage: 8 G, QD
     Route: 048
     Dates: start: 20190522, end: 20190607
  3. SANDIMMUN [Suspect]
     Active Substance: CYCLOSPORINE
     Indication: PROPHYLAXIS AGAINST TRANSPLANT REJECTION
     Route: 042
     Dates: start: 20190424
  4. ACICLOVIR [Suspect]
     Active Substance: ACYCLOVIR
     Indication: ORAL HERPES
     Dosage: 700 MG, Q8H
     Route: 065
     Dates: start: 20190514, end: 20190522
  5. MALOCIDE (FRANCE) [Concomitant]
     Indication: TOXOPLASMOSIS
     Dosage: 50 MG, QD
     Route: 048
     Dates: start: 20190522, end: 20190607
  6. TENOFOVIR DISOPROXIL FUMARATE. [Suspect]
     Active Substance: TENOFOVIR DISOPROXIL FUMARATE
     Indication: PROPHYLAXIS
     Route: 048
     Dates: start: 20190419, end: 20190522
  7. AMIKACINE [AMIKACIN] [Suspect]
     Active Substance: AMIKACIN
     Indication: INFECTION
     Route: 042
     Dates: start: 20190419, end: 20190422
  8. VANCOMYCINE [VANCOMYCIN] [Suspect]
     Active Substance: VANCOMYCIN
     Indication: INFECTION
     Route: 042
     Dates: start: 20190422, end: 20190426
  9. CEFTAZIDIME. [Suspect]
     Active Substance: CEFTAZIDIME
     Indication: INFECTION
     Route: 042
     Dates: start: 20190420, end: 20190515
  10. AMOXICILLINE [AMOXICILLIN] [Suspect]
     Active Substance: AMOXICILLIN
     Indication: ANTIBIOTIC THERAPY
     Dosage: 2 G, 12 HOURS
     Route: 065
     Dates: start: 20190517, end: 20190602

REACTIONS (2)
  - Acute kidney injury [Recovering/Resolving]
  - Renal failure [Recovered/Resolved]

NARRATIVE: CASE EVENT DATE: 20190426
